APPROVED DRUG PRODUCT: DONEPEZIL HYDROCHLORIDE
Active Ingredient: DONEPEZIL HYDROCHLORIDE
Strength: 23MG
Dosage Form/Route: TABLET;ORAL
Application: A202723 | Product #001 | TE Code: AB
Applicant: DR REDDYS LABORATORIES LTD
Approved: Jul 24, 2013 | RLD: No | RS: No | Type: RX